FAERS Safety Report 23701929 (Version 1)
Quarter: 2024Q2

REPORT INFORMATION
  Report Type: Spontaneous
  Country: US (occurrence: None)
  Receive Date: 20240402
  Receipt Date: 20240402
  Transmission Date: 20240715
  Serious: Yes (Hospitalization)
  Sender: FDA-Public Use
  Company Number: None

PATIENT
  Age: 72 Year
  Sex: Male

DRUGS (11)
  1. MYCOPHENOLIC ACID [Suspect]
     Active Substance: MYCOPHENOLIC ACID
     Indication: Renal transplant
     Dosage: FREQ: TAKE 1 CAPSULE BY MOUTH EVERY 12 HOURS.?
     Route: 048
     Dates: start: 20240124
  2. ASPIRIN [Concomitant]
     Active Substance: ASPIRIN
  3. AVODART [Concomitant]
     Active Substance: DUTASTERIDE
  4. CARVEDILOL [Concomitant]
  5. EVEROLIMUS [Concomitant]
  6. FAMOTIDINE [Concomitant]
     Active Substance: FAMOTIDINE
  7. FERROUS SULF [Concomitant]
  8. LASIX [Concomitant]
     Active Substance: FUROSEMIDE
  9. LISINOPRIL [Concomitant]
  10. MYCOPHEOLIC [Concomitant]
  11. NORVASC [Concomitant]

REACTIONS (1)
  - Cystitis [None]

NARRATIVE: CASE EVENT DATE: 20240321
